FAERS Safety Report 7428451-1 (Version None)
Quarter: 2011Q2

REPORT INFORMATION
  Report Type: 
  Country: None (occurrence: None)
  Receive Date: 20110421
  Receipt Date: 20110415
  Transmission Date: 20111010
  Serious: Yes (Hospitalization)
  Sender: FDA-Public Use
  Company Number: PHHY2011CA23168

PATIENT
  Sex: Female
  Weight: 51 kg

DRUGS (10)
  1. AMITRIPTYLINE HCL [Concomitant]
  2. EXTAVIA [Suspect]
     Dosage: 4 MIU, QOD
     Route: 058
     Dates: start: 20110316
  3. EXTAVIA [Suspect]
     Dosage: 6 MIU, QOD
     Route: 058
     Dates: start: 20110330
  4. GABAPENTIN [Concomitant]
  5. EXTAVIA [Suspect]
     Dosage: 8 MIU, QOD
     Route: 058
     Dates: start: 20100316
  6. ZOPICLONE [Concomitant]
  7. VITAMIN D [Concomitant]
  8. PREDNISOLONE [Concomitant]
  9. EXTAVIA [Suspect]
     Indication: RELAPSING-REMITTING MULTIPLE SCLEROSIS
     Dosage: 2 MIU, QOD
     Route: 058
     Dates: start: 20100316
  10. CALCIUM [Concomitant]

REACTIONS (22)
  - DIZZINESS [None]
  - CHEST DISCOMFORT [None]
  - INJECTION SITE SWELLING [None]
  - INFLUENZA LIKE ILLNESS [None]
  - NASOPHARYNGITIS [None]
  - PILOERECTION [None]
  - MUSCLE TIGHTNESS [None]
  - INJECTION SITE ERYTHEMA [None]
  - FEELING COLD [None]
  - RHINORRHOEA [None]
  - HEAD DISCOMFORT [None]
  - INJECTION SITE WARMTH [None]
  - OCULAR HYPERAEMIA [None]
  - NECK PAIN [None]
  - CHILLS [None]
  - PYREXIA [None]
  - MULTIPLE SCLEROSIS RELAPSE [None]
  - PAIN IN EXTREMITY [None]
  - INJECTION SITE PAIN [None]
  - FATIGUE [None]
  - HYPERHIDROSIS [None]
  - COUGH [None]
